FAERS Safety Report 7539356-X (Version None)
Quarter: 2011Q2

REPORT INFORMATION
  Report Type: 
  Country: None (occurrence: None)
  Receive Date: 20110610
  Receipt Date: 20110603
  Transmission Date: 20111010
  Serious: Yes (Other)
  Sender: FDA-Public Use
  Company Number: US-JNJFOC-20110200083

PATIENT
  Sex: Female

DRUGS (3)
  1. MEDROL [Suspect]
     Indication: UPPER RESPIRATORY TRACT INFECTION
     Route: 065
  2. LEVAQUIN [Suspect]
     Indication: UPPER RESPIRATORY TRACT INFECTION
     Route: 048
  3. LEVAQUIN [Suspect]
     Route: 048

REACTIONS (6)
  - ROTATOR CUFF SYNDROME [None]
  - ANXIETY [None]
  - TENDONITIS [None]
  - DEPRESSION [None]
  - AMNESIA [None]
  - DISTURBANCE IN ATTENTION [None]
